FAERS Safety Report 15774832 (Version 1)
Quarter: 2018Q4

REPORT INFORMATION
  Report Type: Spontaneous
  Country: US (occurrence: US)
  Receive Date: 20181211
  Receipt Date: 20181211
  Transmission Date: 20190205
  Serious: No
  Sender: FDA-Public Use
  Company Number: None

PATIENT
  Age: 51 Year
  Sex: Male

DRUGS (2)
  1. PREDNISONE. [Suspect]
     Active Substance: PREDNISONE
  2. MYCOPHENOLATE MOFETIL CAP [Suspect]
     Active Substance: MYCOPHENOLATE MOFETIL
     Dates: start: 20180912

REACTIONS (1)
  - Ligament disorder [None]

NARRATIVE: CASE EVENT DATE: 20181208
